FAERS Safety Report 9991259 (Version 1)
Quarter: 2014Q1

REPORT INFORMATION
  Report Type: Spontaneous
  Country: US (occurrence: US)
  Receive Date: 20140310
  Receipt Date: 20140310
  Transmission Date: 20141002
  Serious: No
  Sender: FDA-Public Use
  Company Number: US-PFIZER INC-2014065804

PATIENT
  Age: 9 Year
  Sex: Female
  Weight: 22.68 kg

DRUGS (5)
  1. GENOTROPIN [Suspect]
     Indication: GROWTH RETARDATION
     Dosage: 01 MG, 1X/DAY
     Dates: start: 201402
  2. ZYRTEC [Concomitant]
     Dosage: 10 MG, 1X/DAY
  3. PREVACID [Concomitant]
     Indication: ANTACID THERAPY
     Dosage: 15 MG, 1X/DAY
  4. NASONEX [Concomitant]
     Dosage: UNK, 1X/DAY
  5. SINGULAIR [Concomitant]
     Dosage: 05 MG, 1X/DAY

REACTIONS (1)
  - Paraesthesia [Recovered/Resolved]
